FAERS Safety Report 7037575-2 (Version None)
Quarter: 2010Q4

REPORT INFORMATION
  Report Type: 
  Country: None (occurrence: None)
  Receive Date: 20101011
  Receipt Date: 20100927
  Transmission Date: 20110411
  Serious: Yes (Hospitalization, Other)
  Sender: FDA-Public Use
  Company Number: PHHY2010FR64488

PATIENT
  Sex: Male

DRUGS (8)
  1. LEPONEX [Suspect]
     Dosage: 100 MG, 2 DF MORNING AND 3 DF EVENING
     Route: 048
     Dates: start: 20070101, end: 20100101
  2. LEPONEX [Suspect]
     Dosage: 3 DF MORNING AND 3 DF EVENING
     Route: 048
     Dates: start: 20100101, end: 20100910
  3. XANAX [Concomitant]
     Dosage: UNK
     Dates: start: 20100301
  4. NEXIUM [Concomitant]
     Dosage: 20 MG
  5. FORLAX [Concomitant]
     Dosage: ON DEMAND
  6. ANAFRANIL [Concomitant]
     Dosage: UNK
     Dates: start: 20100601
  7. IMOVANE [Concomitant]
     Dosage: 7.5 MG, QD
  8. LOXAPAC [Concomitant]
     Dosage: 50 DROPS AT BEDTIME

REACTIONS (10)
  - ALCOHOLISM [None]
  - ANXIETY [None]
  - BLOOD CREATINE PHOSPHOKINASE INCREASED [None]
  - HYPONATRAEMIA [None]
  - MYOGLOBIN BLOOD INCREASED [None]
  - OVERDOSE [None]
  - RHABDOMYOLYSIS [None]
  - SUICIDAL IDEATION [None]
  - TRANSAMINASES INCREASED [None]
  - VOMITING [None]
